FAERS Safety Report 8590964-7 (Version None)
Quarter: 2012Q3

REPORT INFORMATION
  Report Type: 
  Country: None (occurrence: None)
  Receive Date: 20120813
  Receipt Date: 20120801
  Transmission Date: 20120928
  Serious: Yes (Death, Hospitalization)
  Sender: FDA-Public Use
  Company Number: PT-BAXTER-2012BAX005289

PATIENT
  Sex: Male

DRUGS (15)
  1. PHYSIONEAL 40 GLUCOSE 3,86% P/V / 38,6 MG/ML [Suspect]
     Route: 033
     Dates: end: 20120511
  2. CINACALCET HYDROCHLORIDE [Concomitant]
     Route: 065
  3. PHYSIONEAL 40 GLUCOSE 1,36% P/V / 13,6 MG/ML [Suspect]
     Route: 033
     Dates: end: 20120511
  4. PHYSIOSOL IN PLASTIC CONTAINER [Suspect]
     Route: 033
     Dates: end: 20120511
  5. ASPIRIN [Concomitant]
     Route: 048
  6. PERINDOPRIL ERBUMINE [Concomitant]
     Dosage: 1 TABLET DAILY
     Route: 048
  7. TRENTAL [Concomitant]
     Dosage: 2 TABLETS DAILY
     Route: 048
  8. CLONIDINE [Concomitant]
     Dosage: 2 TABLETS 3X/DAY
     Route: 048
  9. EXTRANEAL [Suspect]
     Route: 033
     Dates: end: 20120511
  10. B COMPLEX                          /00212701/ [Concomitant]
     Route: 065
  11. PANTOC [Concomitant]
     Dosage: 1 TABLET DAILY
     Route: 048
  12. FOLIC ACID [Concomitant]
     Route: 065
  13. AMIODARONE HCL [Concomitant]
     Dosage: 1 TABLET DAILY
     Route: 048
  14. EPOETIN [Concomitant]
     Route: 058
  15. ALFACALCIDOL [Concomitant]
     Route: 065

REACTIONS (9)
  - CATHETER SITE INFECTION [None]
  - PNEUMONIA KLEBSIELLA [None]
  - INTESTINAL ISCHAEMIA [None]
  - AMPUTATION STUMP PAIN [None]
  - PERITONEAL DIALYSIS COMPLICATION [None]
  - ABDOMINAL SYMPTOM [None]
  - CULTURE POSITIVE [None]
  - PERITONITIS BACTERIAL [None]
  - STAPHYLOCOCCAL INFECTION [None]
